FAERS Safety Report 5655780-4 (Version None)
Quarter: 2008Q1

REPORT INFORMATION
  Report Type: 
  Country: None (occurrence: None)
  Receive Date: 20080307
  Receipt Date: 20080225
  Transmission Date: 20080703
  Serious: Yes (Hospitalization, Other)
  Sender: FDA-Public Use
  Company Number: US-PFIZER INC-2008018303

PATIENT
  Sex: Female
  Weight: 62.6 kg

DRUGS (10)
  1. LYRICA [Suspect]
     Indication: TREMOR
  2. ALL OTHER THERAPEUTIC PRODUCTS [Concomitant]
  3. AMANTADINE HCL [Concomitant]
  4. XANAX [Concomitant]
  5. ALL OTHER THERAPEUTIC PRODUCTS [Concomitant]
  6. LEXAPRO [Concomitant]
  7. LUNESTA [Concomitant]
  8. PREVACID [Concomitant]
  9. LASIX [Concomitant]
  10. ELAVIL [Concomitant]

REACTIONS (7)
  - ABASIA [None]
  - BLOOD PRESSURE FLUCTUATION [None]
  - DYSPHEMIA [None]
  - FALL [None]
  - HALLUCINATION [None]
  - ILL-DEFINED DISORDER [None]
  - OVERDOSE [None]
